FAERS Safety Report 7517906-7 (Version None)
Quarter: 2011Q2

REPORT INFORMATION
  Report Type: 
  Country: None (occurrence: None)
  Receive Date: 20110523
  Receipt Date: 20110510
  Transmission Date: 20111010
  Serious: Yes (Hospitalization)
  Sender: FDA-Public Use
  Company Number: ACO_24162_2011

PATIENT
  Age: 59 Year
  Sex: Male
  Weight: 111.1 kg

DRUGS (1)
  1. AMPYRA [Suspect]
     Indication: MOVEMENT DISORDER
     Dosage: 10 MG, BID, ORAL
     Route: 048
     Dates: start: 20100801, end: 20100901

REACTIONS (3)
  - MYASTHENIA GRAVIS [None]
  - CONDITION AGGRAVATED [None]
  - BLOOD POTASSIUM DECREASED [None]
